FAERS Safety Report 16586222 (Version 4)
Quarter: 2019Q3

REPORT INFORMATION
  Report Type: Report from Study
  Country: DE (occurrence: DE)
  Receive Date: 20190717
  Receipt Date: 20190930
  Transmission Date: 20191004
  Serious: Yes (Other)
  Sender: FDA-Public Use
  Company Number: PHHY2019DE121451

PATIENT
  Sex: Female
  Weight: 89 kg

DRUGS (4)
  1. FULVESTRANT. [Concomitant]
     Active Substance: FULVESTRANT
     Indication: BREAST CANCER METASTATIC
     Dosage: 500 MG, QD (MONTHLY)
     Route: 030
     Dates: start: 20190807
  2. KISQALI [Suspect]
     Active Substance: RIBOCICLIB
     Indication: BREAST CANCER METASTATIC
     Dosage: 600 MG, 21 DAYS, 7 DAYS PAUSE
     Route: 048
     Dates: start: 20190129, end: 20190513
  3. KISQALI [Suspect]
     Active Substance: RIBOCICLIB
     Dosage: 600 MG, QD (SCHEME 21 DAYS, 7 DAYS PAUSE)
     Route: 048
     Dates: start: 20190529
  4. LETROZOLE ACCORD [Suspect]
     Active Substance: LETROZOLE
     Indication: BREAST CANCER METASTATIC
     Dosage: 2.5 MG, QD
     Route: 048
     Dates: start: 20190129, end: 20190806

REACTIONS (19)
  - Sensory disturbance [Not Recovered/Not Resolved]
  - Supraventricular tachycardia [Unknown]
  - Blood pressure systolic increased [Unknown]
  - Supraventricular extrasystoles [Unknown]
  - Electrocardiogram QT prolonged [Unknown]
  - Pulmonary valve incompetence [Unknown]
  - Arrhythmia [Unknown]
  - Pulmonary embolism [Unknown]
  - Oedema peripheral [Unknown]
  - Blood potassium increased [Unknown]
  - Thrombocytopenia [Recovered/Resolved]
  - Chest pain [Unknown]
  - Dry mouth [Not Recovered/Not Resolved]
  - Leukopenia [Recovering/Resolving]
  - Tricuspid valve incompetence [Unknown]
  - Sinus bradycardia [Unknown]
  - Dyspnoea exertional [Unknown]
  - Myocardial infarction [Unknown]
  - Dizziness [Not Recovered/Not Resolved]

NARRATIVE: CASE EVENT DATE: 20190130
